FAERS Safety Report 8582492-X (Version None)
Quarter: 2012Q3

REPORT INFORMATION
  Report Type: 
  Country: None (occurrence: None)
  Receive Date: 20120727
  Receipt Date: 20120716
  Transmission Date: 20120928
  Serious: Yes (Hospitalization, Other)
  Sender: FDA-Public Use
  Company Number: 2012P1049744

PATIENT
  Age: 41 Year
  Sex: Female

DRUGS (4)
  1. FENTANYL CITRATE [Suspect]
     Indication: ANALGESIC THERAPY
     Dosage: 100 UG;QH;
  2. FENTANYL CITRATE [Suspect]
     Indication: SEDATION
     Dosage: 100 UG;QH;
  3. LORAZEPAM [Concomitant]
  4. 3,4-METHYLENEDIOXYPYROVALERONE (MDPV) (NO PREF. NAME) [Suspect]

REACTIONS (12)
  - BLOOD PRESSURE DIASTOLIC DECREASED [None]
  - PNEUMONIA ASPIRATION [None]
  - BACTERAEMIA [None]
  - HALLUCINATION [None]
  - WHITE BLOOD CELL COUNT INCREASED [None]
  - SEROTONIN SYNDROME [None]
  - CONFUSIONAL STATE [None]
  - AGGRESSION [None]
  - MYOCLONUS [None]
  - COGNITIVE DISORDER [None]
  - HYPERTONIA [None]
  - PNEUMOTHORAX [None]
